FAERS Safety Report 18549283 (Version 3)
Quarter: 2020Q4

REPORT INFORMATION
  Report Type: Report from Study
  Country: DE (occurrence: DE)
  Receive Date: 20201126
  Receipt Date: 20201231
  Transmission Date: 20210114
  Serious: Yes (Hospitalization)
  Sender: FDA-Public Use
  Company Number: DE-SUN PHARMACEUTICAL INDUSTRIES LTD-2020RR-268767

PATIENT
  Age: 89 Year
  Sex: Male

DRUGS (9)
  1. JANOSTERIL [Concomitant]
     Indication: ADVERSE EVENT
     Dosage: 500 MILLIGRAM, UNK
     Route: 042
     Dates: start: 20201110, end: 20201110
  2. METOPROLOL. [Concomitant]
     Active Substance: METOPROLOL
     Indication: PRE-EXISTING DISEASE
     Dosage: 2375 MILLIGRAM, BID
     Route: 048
     Dates: start: 2018
  3. NIV [Concomitant]
     Indication: ADVERSE EVENT
     Dosage: UNK, DAILY
     Dates: start: 20201110, end: 20201114
  4. ODOMZO [Suspect]
     Active Substance: SONIDEGIB
     Indication: BASAL CELL CARCINOMA
     Dosage: 200 MILLIGRAM, DAILY
     Route: 048
     Dates: start: 20201024, end: 20201102
  5. OLMESARTAN [Concomitant]
     Active Substance: OLMESARTAN
     Indication: PRE-EXISTING DISEASE
     Dosage: 40 MILLIGRAM, DAILY
     Route: 048
     Dates: start: 2018
  6. AMLODIPIN [Concomitant]
     Active Substance: AMLODIPINE BESYLATE
     Indication: PRE-EXISTING DISEASE
     Dosage: 8 MILLIGRAM, DAILY
     Route: 048
     Dates: start: 2018
  7. FUROSEMID [Concomitant]
     Active Substance: FUROSEMIDE
     Indication: ADVERSE EVENT
     Dosage: 40 MILLIGRAM, UNK
     Route: 042
     Dates: start: 20201110, end: 20201110
  8. METFORMIN [Concomitant]
     Active Substance: METFORMIN HYDROCHLORIDE
     Indication: PRE-EXISTING DISEASE
     Dosage: 1000 MILLIGRAM, BID
     Route: 048
  9. ELIQUIS [Concomitant]
     Active Substance: APIXABAN
     Indication: PRE-EXISTING DISEASE
     Dosage: 5 MILLIGRAM, DAILY
     Route: 048
     Dates: start: 2018

REACTIONS (7)
  - Pleural effusion [Unknown]
  - Cardiac failure [Unknown]
  - Pulmonary congestion [Unknown]
  - Dyspnoea [Recovered/Resolved]
  - Anaemia [Unknown]
  - Aortic arteriosclerosis [Unknown]
  - Aortic elongation [Unknown]

NARRATIVE: CASE EVENT DATE: 20201110
